FAERS Safety Report 14871269 (Version 1)
Quarter: 2018Q2

REPORT INFORMATION
  Report Type: Other
  Country: US (occurrence: US)
  Receive Date: 20180509
  Receipt Date: 20180509
  Transmission Date: 20180711
  Serious: Yes (Other)
  Sender: FDA-Public Use
  Company Number: US-ALKERMES INC.-ALK-2018-000162

PATIENT
  Age: 50 Year
  Sex: Female
  Weight: 81.9 kg

DRUGS (1)
  1. VIVITROL [Suspect]
     Active Substance: NALTREXONE
     Indication: DRUG DEPENDENCE
     Dosage: 380 MG, QMO
     Route: 030
     Dates: start: 20170815, end: 20170908

REACTIONS (7)
  - Nasopharyngitis [Unknown]
  - Injection site mass [Unknown]
  - Headache [Unknown]
  - Sleep disorder [Unknown]
  - Injection site reaction [Unknown]
  - Injection site induration [Unknown]
  - Injection site pruritus [Unknown]

NARRATIVE: CASE EVENT DATE: 20170815
